FAERS Safety Report 16585705 (Version 1)
Quarter: 2019Q3

REPORT INFORMATION
  Report Type: Spontaneous
  Country: DE (occurrence: DE)
  Receive Date: 20190717
  Receipt Date: 20190717
  Transmission Date: 20191004
  Serious: Yes (Hospitalization, Other)
  Sender: FDA-Public Use
  Company Number: DE-BAXTER-2019BAX013531

PATIENT
  Age: 64 Year
  Sex: Male
  Weight: 79.5 kg

DRUGS (14)
  1. RITUXIMAB. [Suspect]
     Active Substance: RITUXIMAB
     Indication: PRODUCT USED FOR UNKNOWN INDICATION
     Dosage: 375 MG/M?, LAST DOSE 05FEB2018, SOLUTION FOR INJECTION/INFUSION
     Route: 042
  2. DOXORUBICIN [Suspect]
     Active Substance: DOXORUBICIN
     Indication: PRODUCT USED FOR UNKNOWN INDICATION
     Dosage: 50 MG/M?, LAST DOSE 05FEB2018, SOLUTION FOR INJECTION/INFUSION
     Route: 042
  3. PANTOPRAZOLE [Concomitant]
     Active Substance: PANTOPRAZOLE
     Indication: PRODUCT USED FOR UNKNOWN INDICATION
     Dosage: 40 MG, 1-0-0, TABLETS
     Route: 048
  4. ENDOXAN 1G [Suspect]
     Active Substance: CYCLOPHOSPHAMIDE
     Indication: PRODUCT USED FOR UNKNOWN INDICATION
     Dosage: 750 MG/M?, LAST DOSE 05FEB2018, SOLUTION FOR INJECTION/INFUSION
     Route: 042
  5. FILGRASTIM [Suspect]
     Active Substance: FILGRASTIM
     Indication: PRODUCT USED FOR UNKNOWN INDICATION
     Dosage: SOLUTION FOR INJECTION/INFUSION
     Route: 058
  6. ALPHA-LIPOGAMMA [Concomitant]
     Indication: PRODUCT USED FOR UNKNOWN INDICATION
     Dosage: 600 MG, 0-1-0, TABLETS
     Route: 048
  7. ACICLOVIR [Concomitant]
     Active Substance: ACYCLOVIR
     Indication: PRODUCT USED FOR UNKNOWN INDICATION
     Dosage: 400 MG, 1-0-1, TABLETS
     Route: 048
  8. BENZYDAMINE [Concomitant]
     Active Substance: BENZYDAMINE
     Indication: PRODUCT USED FOR UNKNOWN INDICATION
     Dosage: 1.5 MG/ML, 1-1-1-1, SOLUTION
     Route: 048
  9. PARACETAMOL [Concomitant]
     Active Substance: ACETAMINOPHEN
     Indication: PRODUCT USED FOR UNKNOWN INDICATION
     Dosage: 2 G, ON 11FEB2018, TABLETS
     Route: 048
  10. TADALAFIL. [Concomitant]
     Active Substance: TADALAFIL
     Indication: PRODUCT USED FOR UNKNOWN INDICATION
     Dosage: 20 MG, 0-0-2, TABLETS
     Route: 048
  11. FUROSEMIDE. [Concomitant]
     Active Substance: FUROSEMIDE
     Indication: PRODUCT USED FOR UNKNOWN INDICATION
     Dosage: 40 MG, 1-0-0, TABLETS
     Route: 048
  12. SPIRONOLACTONE. [Concomitant]
     Active Substance: SPIRONOLACTONE
     Indication: PRODUCT USED FOR UNKNOWN INDICATION
     Dosage: 50 MG, 1-0-0, TABLETS
     Route: 048
  13. VINCRISTINE [Suspect]
     Active Substance: VINCRISTINE
     Indication: PRODUCT USED FOR UNKNOWN INDICATION
     Dosage: 2 MG, ONCE ON 01DEC2017, SOLUTION FOR INJECTION/INFUSION
     Route: 042
  14. COTRIM FORTE-RATIOPHARM [Concomitant]
     Active Substance: SULFAMETHOXAZOLE\TRIMETHOPRIM
     Indication: PRODUCT USED FOR UNKNOWN INDICATION
     Dosage: 800|160 MG, 1-0-0; 3X/WEEKLY, TABLETS
     Route: 048

REACTIONS (6)
  - Abdominal distension [Unknown]
  - Erysipelas [Unknown]
  - Dry mouth [Unknown]
  - Pyrexia [Unknown]
  - Diarrhoea [Unknown]
  - Paraesthesia [Unknown]
